FAERS Safety Report 7327488-0 (Version None)
Quarter: 2011Q1

REPORT INFORMATION
  Report Type: 
  Country: None (occurrence: None)
  Receive Date: 20110303
  Receipt Date: 20110221
  Transmission Date: 20110831
  Serious: No
  Sender: FDA-Public Use
  Company Number: US-BIOGENIDEC-2010BI027395

PATIENT
  Sex: Female

DRUGS (1)
  1. TYSABRI [Suspect]
     Indication: MULTIPLE SCLEROSIS
     Route: 042
     Dates: start: 20090120, end: 20101026

REACTIONS (4)
  - HYPOAESTHESIA ORAL [None]
  - COGNITIVE DISORDER [None]
  - HYPOAESTHESIA [None]
  - VITREOUS FLOATERS [None]
